FAERS Safety Report 25260136 (Version 1)
Quarter: 2025Q2

REPORT INFORMATION
  Report Type: Spontaneous
  Country: US (occurrence: None)
  Receive Date: 20250501
  Receipt Date: 20250501
  Transmission Date: 20250716
  Serious: No
  Sender: FDA-CTU
  Company Number: None

PATIENT
  Age: 63 Year
  Sex: Male
  Weight: 104 kg

DRUGS (1)
  1. TIRZEPATIDE [Suspect]
     Active Substance: TIRZEPATIDE
     Route: 058

REACTIONS (4)
  - Injection site rash [None]
  - Injection site pruritus [None]
  - Product substitution issue [None]
  - Therapy change [None]

NARRATIVE: CASE EVENT DATE: 20241025
